FAERS Safety Report 23329736 (Version 1)
Quarter: 2023Q4

REPORT INFORMATION
  Report Type: Spontaneous
  Country: CN (occurrence: None)
  Receive Date: 20231222
  Receipt Date: 20231222
  Transmission Date: 20240110
  Serious: Yes (Other)
  Sender: FDA-Public Use
  Company Number: 2023A288304

PATIENT
  Age: 28208 Day
  Sex: Female
  Weight: 66 kg

DRUGS (2)
  1. ROSUVASTATIN CALCIUM [Suspect]
     Active Substance: ROSUVASTATIN CALCIUM
     Indication: Cerebral infarction
     Dosage: BEFORE SLEEP EVERY NIGHT
     Route: 048
     Dates: start: 20231130, end: 20231202
  2. PROBUCOL [Suspect]
     Active Substance: PROBUCOL
     Indication: Cerebral infarction
     Route: 048
     Dates: start: 20231130, end: 20231202

REACTIONS (1)
  - Liver injury [Not Recovered/Not Resolved]

NARRATIVE: CASE EVENT DATE: 20231202
